FAERS Safety Report 9114357 (Version 1)
Quarter: 2013Q1

REPORT INFORMATION
  Report Type: Report from Study
  Country: JP (occurrence: JP)
  Receive Date: 20130208
  Receipt Date: 20130208
  Transmission Date: 20140127
  Serious: Yes (Other)
  Sender: FDA-Public Use
  Company Number: JP-009507513-2012SP034571

PATIENT
  Age: 64 Year
  Sex: Female
  Weight: 55 kg

DRUGS (16)
  1. PEGINTRON [Suspect]
     Indication: CHRONIC HEPATITIS C
     Dosage: 80 MICROGRAM, QW
     Route: 058
     Dates: start: 20111209, end: 20120323
  2. REBETOL [Suspect]
     Indication: CHRONIC HEPATITIS C
     Dosage: 600 MG, QD
     Route: 048
     Dates: start: 20111209, end: 20120216
  3. REBETOL [Suspect]
     Dosage: 600 MG, QOD
     Route: 048
     Dates: start: 20120217, end: 20120308
  4. REBETOL [Suspect]
     Dosage: 400 MG, QOD
     Route: 048
     Dates: start: 20120218, end: 20120308
  5. REBETOL [Suspect]
     Dosage: 200 MG, QD
     Route: 048
     Dates: start: 20120309, end: 20120312
  6. TELAVIC [Suspect]
     Indication: CHRONIC HEPATITIS C
     Dosage: 2250 MG, QD
     Route: 048
     Dates: start: 20111209, end: 20120302
  7. ALLEGRA [Concomitant]
     Indication: RASH
     Dosage: 120 MG, QD
     Route: 048
     Dates: start: 20111216, end: 20120405
  8. ALLEGRA [Concomitant]
     Indication: PRURITUS
     Dosage: 120 UNK, UNK
     Dates: start: 20111216, end: 20120405
  9. DERMOVATE [Concomitant]
     Dosage: 5 G, QD
     Route: 061
     Dates: start: 20120104, end: 20120120
  10. CELESTAMINE [Concomitant]
     Dosage: UNK UNK, UNKNOWN
     Route: 048
     Dates: start: 20120104, end: 20120117
  11. PREDONINE [Concomitant]
     Dosage: 30 MG, QD
     Route: 048
     Dates: start: 20120106, end: 20120119
  12. PREDONINE [Concomitant]
     Dosage: 25 MG, QD
     Route: 048
     Dates: start: 20120120, end: 20120126
  13. PREDONINE [Concomitant]
     Dosage: 20 MG, QD
     Route: 048
     Dates: start: 20120127, end: 20120202
  14. PREDONINE [Concomitant]
     Dosage: 15 MG, QD
     Route: 048
     Dates: start: 20120203, end: 20120209
  15. PREDONINE [Concomitant]
     Dosage: 10 MG, QD
     Route: 048
     Dates: start: 20120210, end: 20120216
  16. PREDONINE [Concomitant]
     Dosage: 5 MG, QD
     Route: 048
     Dates: start: 20120217, end: 20120302

REACTIONS (2)
  - Retinopathy [Recovering/Resolving]
  - Haemoglobin decreased [Recovering/Resolving]
